FAERS Safety Report 23041137 (Version 1)
Quarter: 2023Q4

REPORT INFORMATION
  Report Type: Spontaneous
  Country: ES (occurrence: ES)
  Receive Date: 20231007
  Receipt Date: 20231007
  Transmission Date: 20240110
  Serious: Yes (Life-Threatening)
  Sender: FDA-Public Use
  Company Number: ES-AEMPS-1430512

PATIENT
  Age: 38 Year
  Sex: Female

DRUGS (2)
  1. AMOXICILLIN\CLAVULANIC ACID [Suspect]
     Active Substance: AMOXICILLIN\CLAVULANIC ACID
     Indication: Toothache
     Dosage: 1COMP/8H
     Route: 065
     Dates: start: 20230925, end: 20230925
  2. Enandol [Concomitant]
     Indication: Toothache
     Dosage: 1 COMP/8H (10 TABLETS)
     Route: 065
     Dates: start: 20230925

REACTIONS (3)
  - Pruritus [Recovered/Resolved]
  - Urticaria [Recovered/Resolved]
  - Medication error [Recovered/Resolved]

NARRATIVE: CASE EVENT DATE: 20230925
